FAERS Safety Report 19072199 (Version 1)
Quarter: 2021Q1

REPORT INFORMATION
  Report Type: Spontaneous
  Country: US (occurrence: US)
  Receive Date: 20210330
  Receipt Date: 20210330
  Transmission Date: 20210420
  Serious: Yes (Death, Hospitalization, Other)
  Sender: FDA-Public Use
  Company Number: US-PFIZER INC-2021185631

PATIENT
  Age: 59 Year
  Sex: Male
  Weight: 118 kg

DRUGS (4)
  1. VANCOMYCIN HCL [Suspect]
     Active Substance: VANCOMYCIN HYDROCHLORIDE
     Indication: STAPHYLOCOCCAL INFECTION
     Dosage: DOSED TO ACHIEVE A SERUM TROUGH OF 15 TO 20 MG/LITER
     Route: 042
  2. DAPTOMYCIN. [Suspect]
     Active Substance: DAPTOMYCIN
     Indication: STAPHYLOCOCCAL INFECTION
     Dosage: 8 MG/KG
     Route: 042
  3. TIGECYCLINE. [Suspect]
     Active Substance: TIGECYCLINE
     Indication: STAPHYLOCOCCAL INFECTION
     Dosage: UNK
  4. DALFOPRISTIN/QUINUPRISTIN [Suspect]
     Active Substance: DALFOPRISTIN\QUINUPRISTIN
     Indication: STAPHYLOCOCCAL INFECTION
     Dosage: UNK

REACTIONS (4)
  - Eosinophilic pneumonia [Fatal]
  - Nausea [Unknown]
  - Myalgia [Unknown]
  - Drug resistance [Fatal]
